FAERS Safety Report 21487075 (Version 1)
Quarter: 2022Q4

REPORT INFORMATION
  Report Type: Spontaneous
  Country: US (occurrence: None)
  Receive Date: 20221020
  Receipt Date: 20221020
  Transmission Date: 20230112
  Serious: Yes (Hospitalization, Other)
  Sender: FDA-Public Use
  Company Number: None

PATIENT
  Sex: 0

DRUGS (1)
  1. EVEROLIMUS [Suspect]
     Active Substance: EVEROLIMUS

REACTIONS (9)
  - SARS-CoV-2 test positive [None]
  - Breakthrough COVID-19 [None]
  - Cerebrovascular accident [None]
  - Cerebral artery stenosis [None]
  - Cerebral artery occlusion [None]
  - Cerebral small vessel ischaemic disease [None]
  - Hypercoagulation [None]
  - Embolic stroke [None]
  - Atrial fibrillation [None]

NARRATIVE: CASE EVENT DATE: 20220822
